FAERS Safety Report 23030140 (Version 2)
Quarter: 2023Q4

REPORT INFORMATION
  Report Type: Spontaneous
  Country: US (occurrence: US)
  Receive Date: 20231005
  Receipt Date: 20231114
  Transmission Date: 20240109
  Serious: No
  Sender: FDA-Public Use
  Company Number: US-SA-SAC20230929001167

PATIENT
  Age: 67 Year
  Sex: Female
  Weight: 90.249 kg

DRUGS (2)
  1. DUPIXENT [Suspect]
     Active Substance: DUPILUMAB
     Indication: Dermatitis atopic
     Dosage: 300 MG, QOW
     Route: 058
     Dates: start: 202303
  2. HYDROXYZINE HYDROCHLORIDE [Concomitant]
     Active Substance: HYDROXYZINE HYDROCHLORIDE
     Indication: Dermatitis atopic
     Dosage: UNK

REACTIONS (11)
  - Blister [Unknown]
  - Nasal crusting [Unknown]
  - Tenderness [Unknown]
  - Pain [Unknown]
  - Rash macular [Not Recovered/Not Resolved]
  - Scab [Unknown]
  - Sinusitis [Unknown]
  - Discomfort [Unknown]
  - Nightmare [Unknown]
  - Blood pressure increased [Unknown]
  - Heart rate increased [Unknown]

NARRATIVE: CASE EVENT DATE: 20230101
